FAERS Safety Report 7512831-X (Version None)
Quarter: 2011Q2

REPORT INFORMATION
  Report Type: 
  Country: None (occurrence: None)
  Receive Date: 20110531
  Receipt Date: 20110517
  Transmission Date: 20111010
  Serious: Yes (Hospitalization)
  Sender: FDA-Public Use
  Company Number: FR-ELI_LILLY_AND_COMPANY-FR201105004526

PATIENT
  Sex: Female

DRUGS (9)
  1. LEPTICUR [Concomitant]
     Dosage: 10 MG, QD
     Route: 048
     Dates: end: 20100720
  2. NOZINAN [Concomitant]
     Indication: BIPOLAR DISORDER
     Dosage: 125 MG, QD
     Route: 048
     Dates: start: 20100506
  3. ABILIFY [Concomitant]
     Indication: BIPOLAR DISORDER
     Dosage: 5 MG, QD
     Route: 048
  4. HEPT-A-MYL [Concomitant]
     Indication: ORTHOSTATIC HYPOTENSION
     Dosage: 187.8 MG, TID
     Route: 048
     Dates: start: 20100712, end: 20100720
  5. XANAX [Concomitant]
     Dosage: 1.5 MG, QD
     Route: 048
  6. ZYPREXA [Suspect]
     Indication: BIPOLAR DISORDER
     Dosage: 20 MG, QD
     Route: 048
  7. LEVOTHYROXINE SODIUM [Concomitant]
     Indication: HYPOTHYROIDISM
     Dosage: 50 UG, QD
     Route: 048
  8. NOCTAMIDE [Concomitant]
     Dosage: 2 MG, QD
     Route: 048
  9. COUMADIN [Concomitant]
     Dosage: 2.5 MG, QD
     Route: 048

REACTIONS (4)
  - KLEBSIELLA INFECTION [None]
  - URINARY RETENTION [None]
  - FAECALOMA [None]
  - CONFUSIONAL STATE [None]
